FAERS Safety Report 16230655 (Version 2)
Quarter: 2019Q2

REPORT INFORMATION
  Report Type: Spontaneous
  Country: AR (occurrence: AR)
  Receive Date: 20190423
  Receipt Date: 20190521
  Transmission Date: 20190711
  Serious: Yes (Hospitalization)
  Sender: FDA-Public Use
  Company Number: AR-PFIZER INC-2019169047

PATIENT
  Age: 8 Year
  Sex: Female

DRUGS (1)
  1. GENOTROPIN [Suspect]
     Active Substance: SOMATROPIN
     Indication: FOETAL GROWTH RESTRICTION
     Dosage: 1 TO 1.4 MG, 7 TIMES PER WEEK
     Dates: start: 20171029

REACTIONS (7)
  - Diarrhoea [Recovering/Resolving]
  - Tonsillitis [Recovering/Resolving]
  - Nasal congestion [Recovering/Resolving]
  - Vomiting [Recovering/Resolving]
  - Catarrh [Recovering/Resolving]
  - Secretion discharge [Recovering/Resolving]
  - Seizure [Recovering/Resolving]

NARRATIVE: CASE EVENT DATE: 201809
